FAERS Safety Report 4815212-2 (Version None)
Quarter: 2005Q4

REPORT INFORMATION
  Report Type: 
  Country: None (occurrence: None)
  Receive Date: 20051027
  Receipt Date: 20051017
  Transmission Date: 20060501
  Serious: Yes (Hospitalization)
  Sender: FDA-Public Use
  Company Number: 169984

PATIENT
  Age: 49 Year
  Sex: Female
  Weight: 67.1324 kg

DRUGS (10)
  1. AVONEX [Suspect]
     Indication: MULTIPLE SCLEROSIS
     Dosage: 30 UG;QW;IM
     Route: 030
     Dates: start: 20030103
  2. BACLOFEN [Concomitant]
  3. ZANAFLEX [Concomitant]
  4. NEURONTIN [Concomitant]
  5. TOPAMAX [Concomitant]
  6. KLONOPIN [Concomitant]
  7. NOVANTRONE [Concomitant]
  8. CARDURA [Concomitant]
  9. LIPITOR [Concomitant]
  10. DETROL [Concomitant]

REACTIONS (6)
  - CHILLS [None]
  - DISEASE PROGRESSION [None]
  - FIBULA FRACTURE [None]
  - MULTIPLE SCLEROSIS [None]
  - PARAPLEGIA [None]
  - PYREXIA [None]
